FAERS Safety Report 4365038-1 (Version None)
Quarter: 2004Q2

REPORT INFORMATION
  Report Type: 
  Country: None (occurrence: None)
  Receive Date: 20040521
  Receipt Date: 20040504
  Transmission Date: 20050107
  Serious: Yes (Other)
  Sender: FDA-Public Use
  Company Number: EWC031137109

PATIENT
  Age: 68 Year
  Sex: Male
  Weight: 80 kg

DRUGS (8)
  1. PERGOLIDE MESYLATE [Suspect]
     Indication: PARKINSON'S DISEASE
     Dosage: 6 MG/DAY
     Dates: start: 19970624, end: 20030918
  2. SINEMET [Concomitant]
  3. SELEGILINE HCL [Concomitant]
  4. PROLOPA [Concomitant]
  5. AMANTAN (AMANTADINE HYDROCHLORIDE) [Concomitant]
  6. LEVOTHYROXINE SODIUM [Concomitant]
  7. ASPIRIN 100 (ACETYLSALICYLIC ACID) [Concomitant]
  8. REMERGON (MIRTAZAPINE) [Concomitant]

REACTIONS (9)
  - AORTIC VALVE DISEASE [None]
  - CARDIAC DISORDER [None]
  - CARDIAC MURMUR [None]
  - CARDIAC VALVE DISEASE [None]
  - DILATATION ATRIAL [None]
  - HYPOKINESIA [None]
  - MITRAL VALVE DISEASE [None]
  - PRESCRIBED OVERDOSE [None]
  - PULMONARY HYPERTENSION [None]
